FAERS Safety Report 15967589 (Version 1)
Quarter: 2019Q1

REPORT INFORMATION
  Report Type: Spontaneous
  Country: GB (occurrence: GB)
  Receive Date: 20190215
  Receipt Date: 20190215
  Transmission Date: 20190418
  Serious: Yes (Hospitalization)
  Sender: FDA-Public Use
  Company Number: GB-JNJFOC-20181218531

PATIENT
  Sex: Female
  Weight: 90.5 kg

DRUGS (11)
  1. CLOPIDOGREL [Concomitant]
     Active Substance: CLOPIDOGREL BISULFATE
     Dosage: 56 TABLETS
     Route: 065
     Dates: start: 20110531, end: 20181220
  2. LANSOPRAZOLE. [Concomitant]
     Active Substance: LANSOPRAZOLE
     Dosage: (GASTRO RESISTANT) 30 MG 1 CAP DAILY 56 CAPSULES.
     Route: 065
     Dates: start: 20110531, end: 20181220
  3. FOLIC ACID. [Concomitant]
     Active Substance: FOLIC ACID
     Dosage: 5 MG 1 TAB ONCE WEEKLY 8 TABLETS.
     Route: 065
     Dates: start: 20110531, end: 20181231
  4. COCODAMOL [Concomitant]
     Active Substance: ACETAMINOPHEN\CODEINE PHOSPHATE
     Dosage: 30/500 TABLETS 1 OR 2 TABLETS UP TO 4 TIMES DAILY 100 TABLETS.
     Route: 065
     Dates: start: 20110531, end: 20181231
  5. AMOXICILLIN. [Concomitant]
     Active Substance: AMOXICILLIN
     Dosage: 3 TIMES A DAY FOR 7 DAYS 21 CAPSULES.
     Route: 065
     Dates: start: 20190125, end: 20190125
  6. SOLIFENACIN [Concomitant]
     Active Substance: SOLIFENACIN
     Dosage: 1 TABLET IN THE MORNING 56 TABLETS
     Dates: start: 20161125, end: 20181231
  7. ACICLOVIR [Concomitant]
     Active Substance: ACYCLOVIR
     Dosage: 112 TABLETS
     Route: 065
     Dates: start: 20140819, end: 20181231
  8. HYPROMELLOSE [Concomitant]
     Active Substance: HYPROMELLOSES
     Dosage: TWO DROPS WHEN REQUIRED FOR DRY EYES 10 ML.
     Route: 065
     Dates: start: 20140618, end: 20180112
  9. SIMPONI [Suspect]
     Active Substance: GOLIMUMAB
     Indication: RHEUMATOID ARTHRITIS
     Route: 058
     Dates: start: 201306
  10. LEVOTHYROXINE SODIUM. [Concomitant]
     Active Substance: LEVOTHYROXINE SODIUM
     Dosage: 100 MICROGRAMS 1 TABLET IN THE MORNING 56 TABLETS.
     Route: 065
     Dates: start: 20110531, end: 20181220
  11. ADCAL [Concomitant]
     Active Substance: CALCIUM CARBONATE
     Dosage: 750 MG PLUS 5 MICROGRAMS (200 UNITS)
     Route: 065
     Dates: start: 20160928, end: 20181220

REACTIONS (2)
  - Pain [Unknown]
  - Pharyngitis [Unknown]

NARRATIVE: CASE EVENT DATE: 2018
